FAERS Safety Report 6528606-4 (Version None)
Quarter: 2010Q1

REPORT INFORMATION
  Report Type: 
  Country: None (occurrence: None)
  Receive Date: 20100105
  Receipt Date: 20100105
  Transmission Date: 20100710
  Serious: No
  Sender: FDA-Public Use
  Company Number: None

PATIENT
  Sex: Female
  Weight: 91.173 kg

DRUGS (12)
  1. ABILIFY [Suspect]
     Indication: BIPOLAR II DISORDER
     Dosage: 5 MG 1/DAY PO
     Route: 048
  2. ACTOS [Concomitant]
  3. LAMOTRIGINE [Concomitant]
  4. TRAZODONE HCL [Concomitant]
  5. LISINOPRIL [Concomitant]
  6. DIAZEPAM [Concomitant]
  7. PANTOPRAZOLE [Concomitant]
  8. BENADRYL [Concomitant]
  9. DRAMAMINE [Concomitant]
  10. OXYCONTIN [Concomitant]
  11. OXYCODONE HCL AND ACETAMINOPHEN [Concomitant]
  12. DOCUSATE NA [Concomitant]

REACTIONS (2)
  - NAUSEA [None]
  - VERTIGO [None]
